FAERS Safety Report 24868013 (Version 1)
Quarter: 2025Q1

REPORT INFORMATION
  Report Type: Spontaneous
  Country: CZ (occurrence: CZ)
  Receive Date: 20250121
  Receipt Date: 20250121
  Transmission Date: 20250409
  Serious: Yes (Life-Threatening, Hospitalization, Other)
  Sender: BAUSCH AND LOMB
  Company Number: CZ-VUAB-VUABPHARMA20241230a_Lit

PATIENT
  Age: 60 Year
  Sex: Male

DRUGS (1)
  1. HYDROCORTISONE [Suspect]
     Active Substance: HYDROCORTISONE
     Indication: Dermatitis atopic
     Route: 065

REACTIONS (5)
  - Herpes simplex viraemia [Recovered/Resolved]
  - Eczema herpeticum [Recovering/Resolving]
  - Sepsis [Recovered/Resolved]
  - Pneumonia [Recovered/Resolved]
  - Skin infection [Recovered/Resolved]
